FAERS Safety Report 14765612 (Version 1)
Quarter: 2018Q2

REPORT INFORMATION
  Report Type: Spontaneous
  Country: IT (occurrence: IT)
  Receive Date: 20180416
  Receipt Date: 20180416
  Transmission Date: 20180711
  Serious: Yes (Other)
  Sender: FDA-Public Use
  Company Number: IT-PFIZER INC-2018148952

PATIENT
  Age: 15 Year
  Sex: Female

DRUGS (13)
  1. MITOXANTRONE [Suspect]
     Active Substance: MITOXANTRONE HYDROCHLORIDE
     Dosage: UNK (INTERMEDIATE DOSE)
  2. MITOXANTRONE [Suspect]
     Active Substance: MITOXANTRONE HYDROCHLORIDE
     Indication: ACUTE PROMYELOCYTIC LEUKAEMIA
     Dosage: 10 MG/M2, DAILY FOR 5 DAYS (COURSE 2)
     Route: 042
  3. CYTOSINE ARABINOSIDE [Concomitant]
     Active Substance: CYTARABINE
     Dosage: UNK (INTERMEDIATE DOSE)
  4. METHOTREXATE. [Concomitant]
     Active Substance: METHOTREXATE
     Indication: ACUTE PROMYELOCYTIC LEUKAEMIA
     Dosage: 0.25 MG/KG, WEEKLY
     Route: 030
     Dates: start: 199005, end: 199205
  5. IDARUBICIN HCL [Suspect]
     Active Substance: IDARUBICIN HYDROCHLORIDE
     Dosage: 12 MG/M2, DAILY (DAY 1)
     Route: 042
  6. IDARUBICIN HCL [Suspect]
     Active Substance: IDARUBICIN HYDROCHLORIDE
     Dosage: 5 MG/M2, DAILY (COURSE 1)
     Route: 042
  7. CYTOSINE ARABINOSIDE [Concomitant]
     Active Substance: CYTARABINE
     Indication: ACUTE PROMYELOCYTIC LEUKAEMIA
     Dosage: UNK UNK, DAILY (1G/M2/DAY) (COURSE 1)
     Route: 042
  8. 6-MERCAPTOPURINE MONOHYDRATE [Concomitant]
     Active Substance: MERCAPTOPURINE
     Indication: ACUTE PROMYELOCYTIC LEUKAEMIA
     Dosage: 1 MG/KG, DAILY
     Route: 048
     Dates: start: 199005, end: 199205
  9. ETOPOSIDE. [Suspect]
     Active Substance: ETOPOSIDE
     Dosage: UNK (INTERMEDIATE DOSE)
  10. IDARUBICIN HCL [Suspect]
     Active Substance: IDARUBICIN HYDROCHLORIDE
     Indication: ACUTE PROMYELOCYTIC LEUKAEMIA
     Dosage: 10 MG/M2, DAILY (SINGLE INDUCTION) FOR 6 DAYS
  11. CYTOSINE ARABINOSIDE [Concomitant]
     Active Substance: CYTARABINE
     Dosage: 150 MG/M2, 3X/DAY (FOR 5 DAYS, DAY 1-5)
     Route: 058
  12. ETOPOSIDE. [Suspect]
     Active Substance: ETOPOSIDE
     Indication: ACUTE PROMYELOCYTIC LEUKAEMIA
     Dosage: 100 MG/M2, DAILY FOR 5 DAYS (COURSE 2)
     Route: 042
  13. THIOGUANINE [Concomitant]
     Active Substance: THIOGUANINE
     Indication: ACUTE PROMYELOCYTIC LEUKAEMIA
     Dosage: 6-THIOGUANINE, 70 MG/M2, 3X/DAY (FOR 5 DAYS, DAY1 -5)

REACTIONS (2)
  - Second primary malignancy [Recovered/Resolved]
  - Acute myelomonocytic leukaemia [Recovered/Resolved]
